FAERS Safety Report 18251695 (Version 1)
Quarter: 2020Q3

REPORT INFORMATION
  Report Type: Spontaneous
  Country: US (occurrence: US)
  Receive Date: 20200910
  Receipt Date: 20200910
  Transmission Date: 20201103
  Serious: No
  Sender: FDA-Public Use
  Company Number: US-GLENMARK PHARMACEUTICALS-2020GMK048712

PATIENT

DRUGS (2)
  1. NORETHINDRONE TABLETS USP, 0.35 MG [Suspect]
     Active Substance: NORETHINDRONE
     Indication: DYSMENORRHOEA
     Dosage: 1 DOSAGE FORM, QD (DEFECTIVE PACK)
     Route: 048
     Dates: start: 201902
  2. NORETHINDRONE TABLETS USP, 0.35 MG [Suspect]
     Active Substance: NORETHINDRONE
     Dosage: 1 DOSAGE FORM, QD (EFFECTIVE PACK)
     Route: 048

REACTIONS (3)
  - Drug effective for unapproved indication [Unknown]
  - Product physical issue [Unknown]
  - Product quality issue [Unknown]

NARRATIVE: CASE EVENT DATE: 20200709
